FAERS Safety Report 5888429-6 (Version None)
Quarter: 2008Q3

REPORT INFORMATION
  Report Type: 
  Country: None (occurrence: None)
  Receive Date: 20080918
  Receipt Date: 20080906
  Transmission Date: 20090109
  Serious: Yes (Other)
  Sender: FDA-Public Use
  Company Number: US-PFIZER INC-2008051472

PATIENT
  Sex: Male
  Weight: 94.3 kg

DRUGS (8)
  1. LYRICA [Suspect]
     Indication: PROMOTION OF PERIPHERAL CIRCULATION
     Route: 048
     Dates: start: 20080613
  2. NEXIUM [Concomitant]
  3. TENIDAP SODIUM [Concomitant]
  4. GEMFIBROZIL [Concomitant]
  5. VALTREX [Concomitant]
  6. GLIPIZIDE [Concomitant]
  7. METOPROLOL TARTRATE [Concomitant]
  8. ALL OTHER THERAPEUTIC PRODUCTS [Concomitant]

REACTIONS (8)
  - ABDOMINAL PAIN UPPER [None]
  - BALANCE DISORDER [None]
  - DIZZINESS [None]
  - DRUG DOSE OMISSION [None]
  - FALL [None]
  - FEELING ABNORMAL [None]
  - GAIT DISTURBANCE [None]
  - PSYCHOTIC DISORDER [None]
